FAERS Safety Report 7227221-7 (Version None)
Quarter: 2011Q1

REPORT INFORMATION
  Report Type: 
  Country: None (occurrence: None)
  Receive Date: 20110114
  Receipt Date: 20110103
  Transmission Date: 20110831
  Serious: Yes (Hospitalization, Congenital Anomaly)
  Sender: FDA-Public Use
  Company Number: A0832314A

PATIENT
  Sex: Female

DRUGS (2)
  1. PAXIL CR [Suspect]
     Dosage: 25MG UNKNOWN
  2. PROZAC [Concomitant]

REACTIONS (6)
  - DRUG EXPOSURE DURING PREGNANCY [None]
  - CLEFT LIP [None]
  - DYSMORPHISM [None]
  - CLEFT PALATE [None]
  - CRANIOSYNOSTOSIS [None]
  - SUBDURAL HAEMORRHAGE [None]
